FAERS Safety Report 9070390 (Version 1)
Quarter: 2013Q1

REPORT INFORMATION
  Report Type: Spontaneous
  Country: US (occurrence: US)
  Receive Date: 20130215
  Receipt Date: 20130215
  Transmission Date: 20140127
  Serious: No
  Sender: FDA-Public Use
  Company Number: US-BAYER-2013-017133

PATIENT
  Age: 86 Year
  Sex: Male

DRUGS (7)
  1. STAXYN (FDT/ODT) [Suspect]
     Indication: ERECTILE DYSFUNCTION
     Dosage: 1 DF, UNK
     Route: 048
  2. ASPIRIN (E.C.) [ACETYLSALICYLIC ACID] [Concomitant]
  3. LISINOPRIL [Concomitant]
  4. CARVEDILOL [Concomitant]
  5. ATORVASTATIN [Concomitant]
  6. CEREFOLIN NAC [Concomitant]
  7. SPIRONOLACTONE [Concomitant]

REACTIONS (1)
  - Drug ineffective [None]
